FAERS Safety Report 12612851 (Version 3)
Quarter: 2016Q3

REPORT INFORMATION
  Report Type: Spontaneous
  Country: US (occurrence: US)
  Receive Date: 20160802
  Receipt Date: 20160804
  Transmission Date: 20161109
  Serious: Yes (Death, Hospitalization, Other)
  Sender: FDA-Public Use
  Company Number: US-JNJFOC-20160720143

PATIENT
  Age: 47 Year
  Sex: Male
  Weight: 62 kg

DRUGS (1)
  1. TYLENOL EXTRA STRENGTH [Suspect]
     Active Substance: ACETAMINOPHEN
     Indication: ABDOMINAL PAIN
     Dosage: CHRONIC USE, 2-4 G FOR 4 DAYS, 3 G FOR 4 DAYS
     Route: 065
     Dates: start: 200307

REACTIONS (9)
  - Overdose [Fatal]
  - Acute respiratory distress syndrome [Unknown]
  - Product use issue [Fatal]
  - Acute kidney injury [Unknown]
  - Arrhythmia [Recovered/Resolved]
  - Off label use [Fatal]
  - Syncope [Unknown]
  - Acute hepatic failure [Fatal]
  - Pulmonary oedema [Unknown]

NARRATIVE: CASE EVENT DATE: 200307
